FAERS Safety Report 18784303 (Version 1)
Quarter: 2021Q1

REPORT INFORMATION
  Report Type: Spontaneous
  Country: US (occurrence: US)
  Receive Date: 20210125
  Receipt Date: 20210125
  Transmission Date: 20210419
  Serious: No
  Sender: FDA-Public Use
  Company Number: US-ROCHE-2538616

PATIENT
  Sex: Female
  Weight: 64.47 kg

DRUGS (1)
  1. RITUXAN [Suspect]
     Active Substance: RITUXIMAB
     Indication: MICROSCOPIC POLYANGIITIS
     Route: 042

REACTIONS (6)
  - Paraesthesia oral [Unknown]
  - Eye pruritus [Unknown]
  - Allergy to chemicals [Unknown]
  - Choking [Unknown]
  - Cough [Unknown]
  - Upper-airway cough syndrome [Unknown]
